FAERS Safety Report 9073917 (Version 1)
Quarter: 2013Q1

REPORT INFORMATION
  Report Type: Report from Study
  Country: US (occurrence: US)
  Receive Date: 20130129
  Receipt Date: 20130129
  Transmission Date: 20140127
  Serious: No
  Sender: FDA-Public Use
  Company Number: US-ABBOTT-12P-163-0919306-00

PATIENT
  Age: 75 None
  Sex: Female

DRUGS (9)
  1. HUMIRA 40 MG/0.8 ML PEN [Suspect]
     Indication: RHEUMATOID ARTHRITIS
     Route: 058
     Dates: start: 2008, end: 2008
  2. HUMIRA 40 MG/0.8 ML PEN [Suspect]
     Route: 058
     Dates: start: 201105
  3. ALLEGRA [Concomitant]
     Indication: HYPERSENSITIVITY
  4. HYZAAR [Concomitant]
     Indication: BLOOD PRESSURE
  5. NOVOLOG [Concomitant]
     Indication: DIABETES MELLITUS
  6. PREDNISONE [Concomitant]
     Indication: RHEUMATOID ARTHRITIS
  7. SYNTHROID [Concomitant]
     Indication: HYPOTHYROIDISM
  8. VITAMIN D [Concomitant]
     Indication: MINERAL SUPPLEMENTATION
  9. GLIMEPIRIDE [Concomitant]
     Indication: DIABETES MELLITUS

REACTIONS (4)
  - Fall [Recovered/Resolved]
  - Injury [Recovered/Resolved]
  - Back pain [Recovering/Resolving]
  - Rheumatoid arthritis [Not Recovered/Not Resolved]
